FAERS Safety Report 4562768-3 (Version None)
Quarter: 2005Q1

REPORT INFORMATION
  Report Type: 
  Country: None (occurrence: None)
  Receive Date: 20050121
  Receipt Date: 20050112
  Transmission Date: 20050727
  Serious: Yes (Hospitalization)
  Sender: FDA-Public Use
  Company Number: 2005PK00082

PATIENT
  Age: 76 Year
  Sex: Female

DRUGS (3)
  1. SEROQUEL [Suspect]
     Indication: DEPRESSION
     Dosage: 200 MG DAILY PO
     Route: 048
     Dates: start: 20041008, end: 20041027
  2. VENLAFAXINE HCL [Suspect]
     Indication: DEPRESSION
     Dosage: 75 MG DAILY PO
     Route: 048
     Dates: start: 20041015, end: 20041027
  3. SOLIAN [Concomitant]

REACTIONS (5)
  - ATRIAL FLUTTER [None]
  - CARDIAC FAILURE [None]
  - PLEURAL EFFUSION [None]
  - SUPRAVENTRICULAR TACHYCARDIA [None]
  - TROPONIN I INCREASED [None]
